FAERS Safety Report 5467207-6 (Version None)
Quarter: 2007Q3

REPORT INFORMATION
  Report Type: 
  Country: None (occurrence: None)
  Receive Date: 20070925
  Receipt Date: 20070921
  Transmission Date: 20080115
  Serious: Yes (Death, Hospitalization, Other)
  Sender: FDA-Public Use
  Company Number: JP-BRISTOL-MYERS SQUIBB COMPANY-13891957

PATIENT
  Age: 65 Year
  Sex: Male
  Weight: 42 kg

DRUGS (4)
  1. DASATINIB [Suspect]
     Indication: CHRONIC MYELOID LEUKAEMIA
     Dosage: STARTED ON 26-JUL @ 70MG BID.STOPPED ON 12-JUN-07. RESTARTED ON 25-JUN-07 @50MG BID TILL 30-AUG-07.
     Route: 048
     Dates: start: 20070625, end: 20070831
  2. LASIX [Concomitant]
     Indication: PLEURAL EFFUSION
     Route: 048
     Dates: start: 20070111, end: 20070828
  3. ALDACTONE [Concomitant]
     Indication: PLEURAL EFFUSION
     Route: 048
     Dates: start: 20070111, end: 20070828
  4. SOLULACT [Concomitant]
     Indication: FLUID REPLACEMENT
     Route: 041
     Dates: start: 20070816, end: 20070829

REACTIONS (6)
  - ANOREXIA [None]
  - DYSPNOEA [None]
  - GASTRIC CANCER [None]
  - PNEUMONIA [None]
  - RESPIRATORY FAILURE [None]
  - SQUAMOUS CELL CARCINOMA [None]
